FAERS Safety Report 14853008 (Version 2)
Quarter: 2023Q2

REPORT INFORMATION
  Report Type: Spontaneous
  Country: ES (occurrence: ES)
  Receive Date: 20180507
  Receipt Date: 20230420
  Transmission Date: 20230722
  Serious: Yes (Hospitalization)
  Sender: FDA-Public Use
  Company Number: None

PATIENT
  Age: 48 Year
  Sex: Male

DRUGS (4)
  1. LAMOTRIGINE [Suspect]
     Active Substance: LAMOTRIGINE
     Indication: Epilepsy
     Dosage: LAMOTRIGINA (2579A)
     Route: 065
     Dates: start: 20180102, end: 201802
  2. SIMVASTATIN [Suspect]
     Active Substance: SIMVASTATIN
     Indication: Product used for unknown indication
     Dosage: SIMVASTATINA (1023A)
     Route: 065
     Dates: start: 201801, end: 201802
  3. AMOXICILLIN [Concomitant]
     Active Substance: AMOXICILLIN
     Indication: Product used for unknown indication
     Dosage: AMOXICILINA (108A)
  4. DISULFIRAM [Concomitant]
     Active Substance: DISULFIRAM
     Indication: Alcoholism
     Dosage: DISULFIRAM (1381A)
     Dates: start: 20160927

REACTIONS (4)
  - Stevens-Johnson syndrome [Recovering/Resolving]
  - Dehydration [Recovered/Resolved]
  - Odynophagia [Recovering/Resolving]
  - Pruritus [Recovered/Resolved]

NARRATIVE: CASE EVENT DATE: 20180101
